FAERS Safety Report 10496969 (Version 12)
Quarter: 2014Q4

REPORT INFORMATION
  Report Type: Report from Study
  Country: GB (occurrence: GB)
  Receive Date: 20141006
  Receipt Date: 20141226
  Transmission Date: 20150528
  Serious: Yes (Death, Life-Threatening, Hospitalization)
  Sender: FDA-Public Use
  Company Number: GB-ROCHE-1463040

PATIENT
  Age: 78 Year
  Sex: Male
  Weight: 64 kg

DRUGS (67)
  1. PREDNISOLONE. [Concomitant]
     Active Substance: PREDNISOLONE
     Route: 048
     Dates: start: 20140326, end: 20140328
  2. PARACETAMOL [Concomitant]
     Active Substance: ACETAMINOPHEN
     Route: 048
     Dates: start: 20140325, end: 20140327
  3. DICLOFENAC SODIUM. [Concomitant]
     Active Substance: DICLOFENAC SODIUM
     Route: 065
     Dates: start: 20060227, end: 20060327
  4. SERETIDE [Concomitant]
     Active Substance: FLUTICASONE FUROATE\SALMETEROL XINAFOATE
     Indication: CHRONIC OBSTRUCTIVE PULMONARY DISEASE
     Dosage: 50/25
     Route: 065
     Dates: start: 20140711, end: 20140713
  5. LANSOPRAZOLE. [Concomitant]
     Active Substance: LANSOPRAZOLE
     Route: 048
     Dates: start: 20140711, end: 20140714
  6. FUROSEMIDE. [Concomitant]
     Active Substance: FUROSEMIDE
     Route: 042
     Dates: start: 20140712, end: 20140713
  7. NOREPINEPHRINE [Concomitant]
     Active Substance: NOREPINEPHRINE\NOREPINEPHRINE BITARTRATE
     Dosage: 4 MG
     Route: 050
     Dates: start: 20140713, end: 20140713
  8. CLEXANE [Concomitant]
     Active Substance: ENOXAPARIN SODIUM
     Indication: ANTICOAGULANT THERAPY
     Route: 058
     Dates: start: 20140707, end: 20140708
  9. SALBUTAMOL [Concomitant]
     Active Substance: ALBUTEROL
     Indication: DYSPNOEA
     Dosage: ROUTE OF ADMIN: NEBULISER
     Route: 065
     Dates: start: 20140706, end: 20140706
  10. DIAMORPHINE [Concomitant]
     Active Substance: DIACETYLMORPHINE
     Indication: ANALGESIC THERAPY
     Route: 042
     Dates: start: 20140706, end: 20140706
  11. LEVOTHYROXINE [Concomitant]
     Active Substance: LEVOTHYROXINE
     Route: 048
     Dates: start: 20140712, end: 20140714
  12. FOLIC ACID. [Concomitant]
     Active Substance: FOLIC ACID
     Route: 048
     Dates: start: 20140326, end: 20140326
  13. COCODAMOL [Concomitant]
     Active Substance: ACETAMINOPHEN\CODEINE PHOSPHATE
     Route: 048
     Dates: start: 20081104, end: 2008
  14. 50% DEXTROSE [Concomitant]
     Indication: HYPERKALAEMIA
     Dosage: 25 ML X 2, ONE OFF DOSE
     Route: 042
     Dates: start: 20140713, end: 20140713
  15. MORPHINE SULFATE. [Concomitant]
     Active Substance: MORPHINE SULFATE
     Indication: SEDATION
     Dosage: 60MG/60ML
     Route: 042
     Dates: start: 20140714, end: 20140714
  16. ATROVENT [Concomitant]
     Active Substance: IPRATROPIUM BROMIDE
     Dosage: INDIACATION SOB, ROUTE OF ADMIN: NEBULISER
     Route: 065
     Dates: start: 20140706, end: 20140706
  17. GENTAMICIN. [Concomitant]
     Active Substance: GENTAMICIN
     Indication: ANTIBIOTIC THERAPY
     Route: 042
     Dates: start: 20140706, end: 20140706
  18. FOLIC ACID. [Concomitant]
     Active Substance: FOLIC ACID
     Route: 065
     Dates: start: 20100608
  19. METHOTREXATE [Concomitant]
     Active Substance: METHOTREXATE
     Route: 048
     Dates: start: 20120727
  20. SULFASALAZINE. [Concomitant]
     Active Substance: SULFASALAZINE
     Indication: RHEUMATOID ARTHRITIS
     Route: 048
     Dates: start: 20121106
  21. PREDNISOLONE. [Concomitant]
     Active Substance: PREDNISOLONE
     Indication: INFLAMMATION
     Route: 048
     Dates: start: 20120124
  22. ENOXAPARIN [Concomitant]
     Active Substance: ENOXAPARIN
     Route: 058
     Dates: start: 20140325, end: 20140327
  23. MEROPENEM. [Concomitant]
     Active Substance: MEROPENEM
     Route: 042
     Dates: start: 20140713, end: 20140714
  24. VITAMIN K [Concomitant]
     Active Substance: PHYTONADIONE
     Indication: THROMBOSIS
     Dosage: ONE OFF DOSE
     Route: 042
     Dates: start: 20140714, end: 20140714
  25. DEXTROSE. [Concomitant]
     Active Substance: DEXTROSE
     Indication: HYPERKALAEMIA
     Dosage: ON OFF DOSE
     Route: 042
     Dates: start: 20140712, end: 20140712
  26. RITUXIMAB [Suspect]
     Active Substance: RITUXIMAB
     Indication: RHEUMATOID ARTHRITIS
     Route: 042
     Dates: start: 20140623
  27. AMLODIPINE [Concomitant]
     Active Substance: AMLODIPINE BESYLATE
     Route: 048
     Dates: start: 20140325, end: 20140328
  28. RAMIPRIL. [Concomitant]
     Active Substance: RAMIPRIL
     Indication: HYPERTENSION
     Route: 065
     Dates: start: 20090402
  29. HYDROXYCHLOROQUINE [Concomitant]
     Active Substance: HYDROXYCHLOROQUINE
     Route: 048
     Dates: start: 20120906, end: 20120917
  30. IBUPROFEN. [Concomitant]
     Active Substance: IBUPROFEN
     Route: 065
     Dates: start: 20100223, end: 2010
  31. HYDROCORTISONE. [Concomitant]
     Active Substance: HYDROCORTISONE
     Dosage: ONE OFF DOSE
     Route: 042
     Dates: start: 20140714, end: 20140714
  32. NAPROXEN. [Concomitant]
     Active Substance: NAPROXEN
     Indication: PAIN
     Route: 048
     Dates: start: 20140711, end: 20140711
  33. ACTRAPID [Concomitant]
     Active Substance: INSULIN HUMAN
     Indication: HYPERKALAEMIA
     Route: 042
     Dates: start: 20140712, end: 20140713
  34. FRESH FROZEN PLASMA [Concomitant]
     Active Substance: HUMAN PLASMA
     Dosage: 3 UNITS, ONE OFF DOSE
     Route: 042
     Dates: start: 20140714, end: 20140714
  35. GLUCOSE 20% [Concomitant]
     Dosage: 20 PERCENT IN 500
     Route: 050
     Dates: start: 20140713, end: 20140713
  36. AUGMENTIN [Concomitant]
     Active Substance: AMOXICILLIN\CLAVULANATE POTASSIUM
     Indication: ANTIBIOTIC THERAPY
     Route: 042
     Dates: start: 20140706, end: 20140708
  37. AMLODIPINE [Concomitant]
     Active Substance: AMLODIPINE BESYLATE
     Indication: HYPERTENSION
     Route: 065
     Dates: start: 200801
  38. PREDNISOLONE. [Concomitant]
     Active Substance: PREDNISOLONE
     Route: 048
     Dates: start: 20140711, end: 20140714
  39. TRAMADOL [Concomitant]
     Active Substance: TRAMADOL
     Route: 048
     Dates: start: 20130204
  40. NAPROSYN [Concomitant]
     Active Substance: NAPROXEN
     Route: 065
     Dates: start: 20051205, end: 20060131
  41. CO-AMOXICLAV [Concomitant]
     Active Substance: AMOXICILLIN\CLAVULANIC ACID
     Route: 048
     Dates: start: 20140325, end: 20140328
  42. CALCIUM GLUCONATE. [Concomitant]
     Active Substance: CALCIUM GLUCONATE
     Indication: HYPERKALAEMIA
     Dosage: ONE OFF DOSE
     Route: 042
     Dates: start: 20140712, end: 20140712
  43. NOREPINEPHRINE [Concomitant]
     Active Substance: NOREPINEPHRINE\NOREPINEPHRINE BITARTRATE
     Dosage: 20 MG/250
     Route: 050
     Dates: start: 20140713, end: 20140713
  44. GELATIN [Concomitant]
     Active Substance: GELATIN
     Dosage: 4 PERCENT IN 500
     Route: 042
     Dates: start: 20140713, end: 20140714
  45. INFLIXIMAB [Suspect]
     Active Substance: INFLIXIMAB
     Indication: RHEUMATOID ARTHRITIS
     Route: 042
     Dates: start: 20130701
  46. FOLIC ACID. [Concomitant]
     Active Substance: FOLIC ACID
     Route: 048
     Dates: start: 20140712, end: 20140712
  47. CODEINE PHOSPHATE [Concomitant]
     Active Substance: CODEINE PHOSPHATE
     Route: 048
     Dates: start: 20140711, end: 20140711
  48. PARACETAMOL [Concomitant]
     Active Substance: ACETAMINOPHEN
     Indication: PAIN
     Route: 065
     Dates: start: 2005
  49. PARACETAMOL [Concomitant]
     Active Substance: ACETAMINOPHEN
     Route: 048
     Dates: start: 20140711, end: 20140714
  50. MELOXICAM. [Concomitant]
     Active Substance: MELOXICAM
     Route: 065
     Dates: start: 20070111, end: 2007
  51. SENNA [Concomitant]
     Active Substance: SENNA LEAF\SENNOSIDES\SENNOSIDES A AND B
     Indication: CONSTIPATION
     Route: 048
     Dates: start: 20140325, end: 20140327
  52. GELOFUSINE (UNITED KINGDOM) [Concomitant]
     Indication: HYPOTENSION
     Dosage: 500 ML X 3, ONE OFF DOSE
     Route: 042
     Dates: start: 20140711, end: 20140712
  53. CLARITHROMYCIN. [Concomitant]
     Active Substance: CLARITHROMYCIN
     Indication: ANTIBIOTIC THERAPY
     Route: 048
     Dates: start: 20140706, end: 20140709
  54. METHOTREXATE [Concomitant]
     Active Substance: METHOTREXATE
     Route: 048
     Dates: start: 20140711, end: 20140711
  55. SULFASALAZINE. [Concomitant]
     Active Substance: SULFASALAZINE
     Route: 048
     Dates: start: 20140325, end: 20140328
  56. CODEINE PHOSPHATE [Concomitant]
     Active Substance: CODEINE PHOSPHATE
     Indication: PAIN
     Route: 048
     Dates: start: 2009, end: 2009
  57. TIOTROPIUM [Concomitant]
     Active Substance: TIOTROPIUM
     Indication: CHRONIC OBSTRUCTIVE PULMONARY DISEASE
     Route: 065
     Dates: start: 20140711, end: 20140712
  58. TAZOCIN [Concomitant]
     Active Substance: PIPERACILLIN SODIUM\TAZOBACTAM SODIUM
     Route: 042
     Dates: start: 20140711, end: 20140712
  59. NORMAL SALINE [Concomitant]
     Active Substance: SODIUM CHLORIDE
     Indication: HYPERKALAEMIA
     Dosage: 1L X 4, ONE OFF DOSE
     Route: 042
     Dates: start: 20140711, end: 20140712
  60. GTN [Concomitant]
     Active Substance: NITROGLYCERIN
     Indication: PULMONARY OEDEMA
     Dosage: 1 ML/HR
     Route: 042
     Dates: start: 20140713, end: 20140714
  61. AUGMENTIN [Concomitant]
     Active Substance: AMOXICILLIN\CLAVULANATE POTASSIUM
     Route: 048
     Dates: start: 20140708
  62. LEVOTHYROXINE [Concomitant]
     Active Substance: LEVOTHYROXINE
     Indication: HYPOTHYROIDISM
     Route: 065
     Dates: start: 20060130
  63. LEVOTHYROXINE [Concomitant]
     Active Substance: LEVOTHYROXINE
     Route: 048
     Dates: start: 20140325, end: 20140328
  64. PREGABALIN. [Concomitant]
     Active Substance: PREGABALIN
     Route: 048
     Dates: start: 20060808, end: 2006
  65. DOCUSATE SODIUM. [Concomitant]
     Active Substance: DOCUSATE SODIUM
     Indication: CONSTIPATION
     Route: 048
     Dates: start: 20140325, end: 20140328
  66. SALBUTAMOL [Concomitant]
     Active Substance: ALBUTEROL
     Indication: CHRONIC OBSTRUCTIVE PULMONARY DISEASE
     Dosage: ONE OFF
     Route: 065
     Dates: start: 20140713, end: 20140713
  67. CYCLIZINE [Concomitant]
     Active Substance: CYCLIZINE
     Indication: VOMITING
     Route: 042
     Dates: start: 20140712, end: 20140712

REACTIONS (3)
  - Lower respiratory tract infection [Recovered/Resolved]
  - Lower respiratory tract infection [Recovering/Resolving]
  - Pneumonia [Fatal]

NARRATIVE: CASE EVENT DATE: 20140325
